FAERS Safety Report 4552605-5 (Version None)
Quarter: 2005Q1

REPORT INFORMATION
  Report Type: 
  Country: None (occurrence: None)
  Receive Date: 20050114
  Receipt Date: 20041105
  Transmission Date: 20050727
  Serious: No
  Sender: FDA-Public Use
  Company Number: US-GLAXOSMITHKLINE-A0532826A

PATIENT
  Age: 45 Year
  Sex: Female

DRUGS (9)
  1. IMITREX [Suspect]
     Indication: MIGRAINE
     Dosage: 6MG AS REQUIRED
     Route: 058
     Dates: start: 20040901
  2. MONOPRIL [Concomitant]
     Indication: DRUG USE FOR UNKNOWN INDICATION
  3. GEMFIBROZIL [Concomitant]
     Indication: DRUG USE FOR UNKNOWN INDICATION
  4. LEVOTHYROXINE SODIUM [Concomitant]
     Indication: DRUG USE FOR UNKNOWN INDICATION
  5. MIGRAZONE [Concomitant]
     Indication: DRUG USE FOR UNKNOWN INDICATION
  6. ESTRACE [Concomitant]
     Indication: DRUG USE FOR UNKNOWN INDICATION
  7. PREVACID [Concomitant]
     Indication: DRUG USE FOR UNKNOWN INDICATION
  8. BENTYL [Concomitant]
     Indication: DRUG USE FOR UNKNOWN INDICATION
  9. KEPPRA [Concomitant]
     Indication: DRUG USE FOR UNKNOWN INDICATION

REACTIONS (3)
  - INJECTION SITE HAEMORRHAGE [None]
  - INJECTION SITE PAIN [None]
  - PHARMACEUTICAL PRODUCT COMPLAINT [None]
